FAERS Safety Report 5814328-1 (Version None)
Quarter: 2008Q3

REPORT INFORMATION
  Report Type: 
  Country: None (occurrence: None)
  Receive Date: 20080715
  Receipt Date: 20080630
  Transmission Date: 20090109
  Serious: Yes (Hospitalization)
  Sender: FDA-Public Use
  Company Number: 2008S1009557

PATIENT
  Age: 61 Year
  Sex: Female
  Weight: 98.4306 kg

DRUGS (5)
  1. FENTANYL TRANSDERMAL SYSTEM [Suspect]
     Indication: PAIN
     Dosage: 25 UG; HR; TRANSDERMAL
     Route: 062
     Dates: start: 20080503, end: 20080509
  2. FENTANYL TRANSDERMAL SYSTEM [Suspect]
     Indication: PAIN
     Dosage: 100 UG; HR; TRANSDERMAL
     Route: 062
     Dates: start: 20080503, end: 20080509
  3. HYDROCODONE BITARTRATE [Concomitant]
  4. MORPHINE [Concomitant]
  5. PERCOCET [Concomitant]

REACTIONS (1)
  - DYSKINESIA [None]
